FAERS Safety Report 17744282 (Version 2)
Quarter: 2020Q2

REPORT INFORMATION
  Report Type: Spontaneous
  Country: SA (occurrence: SA)
  Receive Date: 20200504
  Receipt Date: 20200515
  Transmission Date: 20200714
  Serious: Yes (Other)
  Sender: FDA-Public Use
  Company Number: SA-AMGEN-SAUSP2020069405

PATIENT
  Age: 50 Year
  Sex: Male

DRUGS (12)
  1. DARATUMUMAB [Suspect]
     Active Substance: DARATUMUMAB
     Indication: PLASMA CELL MYELOMA
     Dosage: UNK
     Route: 065
  2. DOXORUBICIN [Suspect]
     Active Substance: DOXORUBICIN
     Indication: PLASMA CELL MYELOMA
     Dosage: UNK
     Route: 065
     Dates: start: 201612, end: 201701
  3. VENETOCLAX. [Suspect]
     Active Substance: VENETOCLAX
     Indication: PLASMA CELL MYELOMA
     Dosage: 50 MG PER DAY-200 MG PER DAY-MULTIPLE DOASE ADJUSTMENTS.
     Route: 065
     Dates: start: 20190316, end: 2019
  4. DEXAMETHASONE. [Suspect]
     Active Substance: DEXAMETHASONE
     Indication: PLASMA CELL MYELOMA
     Dosage: UNK- 40 MG WEEKLY-UNK
     Route: 065
     Dates: start: 201603
  5. BORTEZOMIB. [Suspect]
     Active Substance: BORTEZOMIB
     Indication: PLASMA CELL MYELOMA
     Dosage: UNK, EVERY OTHER WEEK
     Route: 065
  6. CYCLOPHOSPHAMIDE. [Suspect]
     Active Substance: CYCLOPHOSPHAMIDE
     Indication: PLASMA CELL MYELOMA
     Dosage: UNK
     Route: 065
  7. KYPROLIS [Suspect]
     Active Substance: CARFILZOMIB
     Indication: PLASMA CELL MYELOMA
     Dosage: UNK
     Route: 065
     Dates: start: 201603, end: 2016
  8. ELOTUZUMAB. [Suspect]
     Active Substance: ELOTUZUMAB
     Indication: PLASMA CELL MYELOMA
     Dosage: UNK
     Route: 065
  9. REVLIMID [Suspect]
     Active Substance: LENALIDOMIDE
     Indication: PLASMA CELL MYELOMA
     Dosage: UNK
     Route: 065
     Dates: start: 201603
  10. CISPLATIN. [Suspect]
     Active Substance: CISPLATIN
     Indication: PLASMA CELL MYELOMA
     Dosage: UNK
     Route: 065
     Dates: start: 201612, end: 201701
  11. KYPROLIS [Suspect]
     Active Substance: CARFILZOMIB
     Dosage: UNK
     Route: 065
     Dates: start: 2019
  12. KYPROLIS [Suspect]
     Active Substance: CARFILZOMIB
     Dosage: 56 MILLIGRAM/SQ. METER, ON DAYS 1, 2, 8
     Route: 065
     Dates: start: 20190316, end: 2019

REACTIONS (4)
  - Spinal compression fracture [Unknown]
  - Therapy non-responder [Unknown]
  - Plasma cell myeloma [Unknown]
  - Off label use [Unknown]

NARRATIVE: CASE EVENT DATE: 2016
